FAERS Safety Report 24663136 (Version 1)
Quarter: 2024Q4

REPORT INFORMATION
  Report Type: Spontaneous
  Country: JP (occurrence: JP)
  Receive Date: 20241126
  Receipt Date: 20241126
  Transmission Date: 20250115
  Serious: Yes (Death, Hospitalization, Other)
  Sender: EPIC PHARM
  Company Number: JP-EPICPHARMA-JP-2024EPCLIT01486

PATIENT
  Age: 76 Year
  Sex: Male

DRUGS (10)
  1. IRINOTECAN HYDROCHLORIDE [Suspect]
     Active Substance: IRINOTECAN HYDROCHLORIDE
     Indication: Oesophageal carcinoma
     Route: 065
  2. GIMERACIL [Suspect]
     Active Substance: GIMERACIL
     Indication: Oesophageal carcinoma
     Route: 065
  3. OTERACIL [Suspect]
     Active Substance: OTERACIL
     Indication: Oesophageal carcinoma
     Route: 065
  4. TEGAFUR [Suspect]
     Active Substance: TEGAFUR
     Indication: Oesophageal carcinoma
     Route: 065
  5. RAMUCIRUMAB [Suspect]
     Active Substance: RAMUCIRUMAB
     Indication: Oesophageal carcinoma
     Route: 065
  6. NIVOLUMAB [Suspect]
     Active Substance: NIVOLUMAB
     Indication: Oesophageal carcinoma
     Route: 065
  7. OXALIPLATIN [Suspect]
     Active Substance: OXALIPLATIN
     Indication: Oesophageal carcinoma
     Route: 065
  8. PACLITAXEL [Suspect]
     Active Substance: PACLITAXEL
     Indication: Oesophageal carcinoma
     Route: 065
  9. TIPIRACIL [Suspect]
     Active Substance: TIPIRACIL
     Indication: Oesophageal carcinoma
     Route: 065
  10. TRIFLURIDINE [Suspect]
     Active Substance: TRIFLURIDINE
     Indication: Oesophageal carcinoma
     Route: 065

REACTIONS (3)
  - Cerebral artery embolism [Fatal]
  - Intestinal haematoma [Fatal]
  - Drug ineffective for unapproved indication [Unknown]
